FAERS Safety Report 11462842 (Version 2)
Quarter: 2017Q2

REPORT INFORMATION
  Report Type: Spontaneous
  Country: US (occurrence: US)
  Receive Date: 20150831
  Receipt Date: 20170404
  Transmission Date: 20170829
  Serious: No
  Sender: FDA-Public Use
  Company Number: US-ELI_LILLY_AND_COMPANY-US201102000606

PATIENT
  Sex: Female

DRUGS (2)
  1. CYMBALTA [Suspect]
     Active Substance: DULOXETINE HYDROCHLORIDE
     Dosage: 60 MG, DAILY (1/D)
     Dates: end: 201101
  2. CYMBALTA [Suspect]
     Active Substance: DULOXETINE HYDROCHLORIDE
     Indication: DEPRESSION
     Dosage: UNK, UNKNOWN

REACTIONS (13)
  - Anxiety [Unknown]
  - Feeling abnormal [Not Recovered/Not Resolved]
  - Dysphemia [Not Recovered/Not Resolved]
  - Paraesthesia [Not Recovered/Not Resolved]
  - Dysphoria [Unknown]
  - Vertigo [Unknown]
  - Nausea [Unknown]
  - Sensory disturbance [Unknown]
  - Dizziness [Not Recovered/Not Resolved]
  - Irritability [Unknown]
  - Drug withdrawal syndrome [Not Recovered/Not Resolved]
  - Mental impairment [Not Recovered/Not Resolved]
  - Agitation [Unknown]
